FAERS Safety Report 6898043-1 (Version None)
Quarter: 2010Q3

REPORT INFORMATION
  Report Type: 
  Country: None (occurrence: None)
  Receive Date: 20100802
  Receipt Date: 20070820
  Transmission Date: 20110219
  Serious: No
  Sender: FDA-Public Use
  Company Number: US-PFIZER INC-2007069283

PATIENT
  Sex: Female
  Weight: 72.6 kg

DRUGS (6)
  1. LYRICA [Suspect]
     Indication: NERVE INJURY
     Dates: start: 20070716, end: 20070812
  2. LYRICA [Suspect]
     Indication: PAIN IN EXTREMITY
  3. COZAAR [Concomitant]
  4. LEVOTHYROXINE SODIUM [Concomitant]
  5. HYDROCHLOROTHIAZIDE [Concomitant]
  6. CAPSAICIN [Concomitant]

REACTIONS (11)
  - ABDOMINAL PAIN UPPER [None]
  - BURNING SENSATION [None]
  - CONFUSIONAL STATE [None]
  - FATIGUE [None]
  - HYPOAESTHESIA [None]
  - INCORRECT DOSE ADMINISTERED [None]
  - MENTAL IMPAIRMENT [None]
  - PERSONALITY DISORDER [None]
  - SOMNOLENCE [None]
  - UNEVALUABLE EVENT [None]
  - WEIGHT INCREASED [None]
